FAERS Safety Report 7526253-9 (Version None)
Quarter: 2011Q2

REPORT INFORMATION
  Report Type: 
  Country: None (occurrence: None)
  Receive Date: 20110606
  Receipt Date: 20110526
  Transmission Date: 20111010
  Serious: Yes (Hospitalization)
  Sender: FDA-Public Use
  Company Number: PHHY2011IT19778

PATIENT
  Sex: Male

DRUGS (7)
  1. RITUXAN [Suspect]
     Indication: NON-HODGKIN'S LYMPHOMA STAGE III
     Dosage: CYCLIC DOSAGE OF 600 MG
     Route: 042
     Dates: start: 20100111, end: 20100503
  2. CYCLOPHOSPHAMIDE [Concomitant]
     Indication: NON-HODGKIN'S LYMPHOMA STAGE III
     Dosage: UNK
     Route: 042
     Dates: start: 20100111, end: 20100503
  3. NORVASC [Concomitant]
     Indication: HYPERTENSION
     Dosage: 10 MG, UNK
     Route: 048
     Dates: start: 20060101, end: 20100601
  4. ENAPREN [Concomitant]
     Indication: NON-HODGKIN'S LYMPHOMA STAGE III
     Dosage: 20 MG, UNK
     Route: 048
  5. PREDNISONE [Suspect]
     Indication: NON-HODGKIN'S LYMPHOMA STAGE III
     Dosage: 100 MG, UNK
     Route: 048
     Dates: start: 20100111, end: 20100503
  6. DOXORUBICIN HCL [Suspect]
     Indication: NON-HODGKIN'S LYMPHOMA STAGE III
     Dosage: CYCLIC DOSAGE OF 80 MG
     Route: 042
     Dates: start: 20100111, end: 20100503
  7. VINCRISTINE [Concomitant]
     Indication: NON-HODGKIN'S LYMPHOMA STAGE III
     Dosage: 2 MG, UNK
     Route: 042
     Dates: start: 20100111, end: 20100503

REACTIONS (6)
  - HEPATITIS B [None]
  - COAGULOPATHY [None]
  - ASCITES [None]
  - OEDEMA PERIPHERAL [None]
  - HEPATOMEGALY [None]
  - EFFUSION [None]
